FAERS Safety Report 25462612 (Version 1)
Quarter: 2025Q2

REPORT INFORMATION
  Report Type: Spontaneous
  Country: DK (occurrence: None)
  Receive Date: 20250620
  Receipt Date: 20250620
  Transmission Date: 20250717
  Serious: Yes (Life-Threatening, Disabling)
  Sender: FDA-CTU
  Company Number: None

PATIENT
  Age: 28 Year
  Sex: Male
  Weight: 72 kg

DRUGS (8)
  1. VENLAFAXINE [Suspect]
     Active Substance: VENLAFAXINE HYDROCHLORIDE
     Indication: Stress
     Dosage: FREQUENCY : DAILY;?
     Route: 048
  2. VENLAFAXINE [Suspect]
     Active Substance: VENLAFAXINE HYDROCHLORIDE
     Indication: Anxiety
  3. FLUTICASONE FUROATE [Concomitant]
     Active Substance: FLUTICASONE FUROATE
  4. Vitamins b [Concomitant]
  5. Vitamins d [Concomitant]
  6. MAGNESIUM [Concomitant]
     Active Substance: MAGNESIUM
  7. ZINC [Concomitant]
     Active Substance: ZINC
  8. FISH OIL [Concomitant]
     Active Substance: FISH OIL

REACTIONS (20)
  - Genital hypoaesthesia [None]
  - Aphantasia [None]
  - Hyperhidrosis [None]
  - Ejaculation delayed [None]
  - Premature ejaculation [None]
  - Muscle contractions involuntary [None]
  - Penile pain [None]
  - Nausea [None]
  - Vomiting [None]
  - Anxiety [None]
  - Sexual dysfunction [None]
  - Anhedonia [None]
  - Nightmare [None]
  - Bedridden [None]
  - Loss of employment [None]
  - Economic problem [None]
  - Social problem [None]
  - Fatigue [None]
  - Suicidal ideation [None]
  - General physical health deterioration [None]

NARRATIVE: CASE EVENT DATE: 20200101
